FAERS Safety Report 6317460-1 (Version None)
Quarter: 2009Q3

REPORT INFORMATION
  Report Type: 
  Country: None (occurrence: None)
  Receive Date: 20090820
  Receipt Date: 20090820
  Transmission Date: 20100115
  Serious: Yes (Other)
  Sender: FDA-Public Use
  Company Number: None

PATIENT
  Sex: Female
  Weight: 86.1834 kg

DRUGS (1)
  1. VERAPAMIL [Suspect]
     Indication: CARDIAC DISORDER
     Dosage: 120MG 1 A DAY
     Dates: start: 20090708, end: 20090717

REACTIONS (5)
  - ABDOMINAL DISTENSION [None]
  - DIZZINESS [None]
  - DYSPNOEA [None]
  - POLYURIA [None]
  - SOMNOLENCE [None]
